FAERS Safety Report 11405198 (Version 1)
Quarter: 2015Q3

REPORT INFORMATION
  Report Type: Spontaneous
  Country: PT (occurrence: PT)
  Receive Date: 20150821
  Receipt Date: 20150821
  Transmission Date: 20151125
  Serious: Yes (Other)
  Sender: FDA-Public Use
  Company Number: PT-FRESENIUS KABI-FK201503952

PATIENT
  Age: 78 Year
  Sex: Male
  Weight: 99 kg

DRUGS (1)
  1. ROCURONIUMBROMID KABI 10 MG/ML (ROCURONIUM BROMIDE) (ROCURONIUM BROMIDE) [Suspect]
     Active Substance: ROCURONIUM BROMIDE
     Indication: NEUROMUSCULAR BLOCKING THERAPY
     Route: 042
     Dates: start: 20150730, end: 20150731

REACTIONS (4)
  - Angiopathy [Unknown]
  - Drug interaction [None]
  - Infusion site necrosis [Unknown]
  - Local reaction [Unknown]

NARRATIVE: CASE EVENT DATE: 20150730
